FAERS Safety Report 5928471-X (Version None)
Quarter: 2008Q4

REPORT INFORMATION
  Report Type: 
  Country: None (occurrence: None)
  Receive Date: 20081020
  Receipt Date: 20081010
  Transmission Date: 20090506
  Serious: Yes (Other)
  Sender: FDA-Public Use
  Company Number: MSTR-NO-0810S-0096

PATIENT
  Age: 67 Year
  Sex: Male
  Weight: 64 kg

DRUGS (4)
  1. METASTRON [Suspect]
     Indication: METASTATIC PAIN
     Dosage: 3.7 ML, SINGLE DOSE, I.V.
     Route: 042
     Dates: start: 20080219, end: 20080219
  2. METASTRON [Suspect]
     Indication: METASTATIC PAIN
     Dosage: 3.7 ML, SINGLE DOSE, I.V.
     Route: 042
     Dates: start: 20080612, end: 20080612
  3. ZOLEDRONIC ACID [Concomitant]
  4. METASTRON [Suspect]

REACTIONS (4)
  - BONE MARROW TUMOUR CELL INFILTRATION [None]
  - CONDITION AGGRAVATED [None]
  - DISSEMINATED INTRAVASCULAR COAGULATION [None]
  - PROSTATE CANCER [None]
